FAERS Safety Report 17349796 (Version 1)
Quarter: 2020Q1

REPORT INFORMATION
  Report Type: Spontaneous
  Country: US (occurrence: US)
  Receive Date: 20200130
  Receipt Date: 20200130
  Transmission Date: 20200409
  Serious: No
  Sender: FDA-Public Use
  Company Number: US-AUROBINDO-AUR-APL-2019-042647

PATIENT
  Sex: Male

DRUGS (1)
  1. DULOXETINE. [Suspect]
     Active Substance: DULOXETINE
     Indication: PRODUCT USED FOR UNKNOWN INDICATION
     Dosage: UNK
     Route: 065
     Dates: end: 20190709

REACTIONS (6)
  - Paraesthesia [Unknown]
  - Headache [Unknown]
  - Tremor [Unknown]
  - Chest discomfort [Unknown]
  - Feeling abnormal [Unknown]
  - Withdrawal syndrome [Unknown]
